FAERS Safety Report 9721692 (Version 2)
Quarter: 2014Q1

REPORT INFORMATION
  Report Type: Spontaneous
  Country: US (occurrence: US)
  Receive Date: 20131201
  Receipt Date: 20140225
  Transmission Date: 20141002
  Serious: No
  Sender: FDA-Public Use
  Company Number: US-ABBVIE-13P-163-1152955-00

PATIENT
  Age: 73 Year
  Sex: Male
  Weight: 88.53 kg

DRUGS (2)
  1. ANDROGEL [Suspect]
     Indication: BLOOD TESTOSTERONE DECREASED
     Route: 061
     Dates: start: 201308, end: 201309
  2. ANDROGEL [Suspect]
     Route: 061
     Dates: start: 201309, end: 201309

REACTIONS (2)
  - Drug prescribing error [Unknown]
  - Blood testosterone decreased [Not Recovered/Not Resolved]
